FAERS Safety Report 16177764 (Version 1)
Quarter: 2019Q2

REPORT INFORMATION
  Report Type: Spontaneous
  Country: IT (occurrence: IT)
  Receive Date: 20190410
  Receipt Date: 20190410
  Transmission Date: 20190711
  Serious: Yes (Other)
  Sender: FDA-Public Use
  Company Number: IT-AUROBINDO-AUR-APL-2018-001230

PATIENT

DRUGS (9)
  1. FLUOROURACIL. [Suspect]
     Active Substance: FLUOROURACIL
     Indication: COLORECTAL CANCER METASTATIC
     Dosage: 2000 MG/M2, Q15
     Route: 042
     Dates: start: 20161219, end: 20170607
  2. LEUCOVORIN. [Concomitant]
     Active Substance: LEUCOVORIN
     Indication: COLORECTAL CANCER
     Dosage: 340 MILLIGRAM (340 MG, Q2WK)
     Route: 042
     Dates: start: 20161219, end: 20161221
  3. ALOXI [Concomitant]
     Active Substance: PALONOSETRON HYDROCHLORIDE
     Indication: PRODUCT USED FOR UNKNOWN INDICATION
     Dosage: UNK
     Route: 065
  4. OXALIPLATIN. [Suspect]
     Active Substance: OXALIPLATIN
     Indication: COLORECTAL CANCER METASTATIC
     Dosage: 81 MG/M2, Q15
     Route: 042
     Dates: start: 20161219, end: 20170607
  5. VECTIBIX [Suspect]
     Active Substance: PANITUMUMAB
     Dosage: 440 MILLIGRAM (440 MG, Q2WK)
     Route: 042
  6. VECTIBIX [Suspect]
     Active Substance: PANITUMUMAB
     Indication: COLORECTAL CANCER METASTATIC
     Dosage: 296 MILLIGRAM (296 MG, Q15)
     Route: 042
     Dates: start: 20161219
  7. 5-FU                               /00098801/ [Concomitant]
     Active Substance: FLUOROURACIL
     Indication: COLORECTAL CANCER
     Dosage: 3700 MG, Q2WK
     Route: 042
     Dates: start: 20161219, end: 20161221
  8. OXALIPLATIN. [Suspect]
     Active Substance: OXALIPLATIN
     Indication: COLORECTAL CANCER
     Dosage: 140 MG, Q2WK
     Route: 042
     Dates: start: 20161219, end: 20161221
  9. FLUOROURACIL. [Suspect]
     Active Substance: FLUOROURACIL
     Dosage: 3700 MG, Q2WK
     Route: 042
     Dates: start: 20161219, end: 20161221

REACTIONS (15)
  - Haemorrhoids [Recovered/Resolved]
  - Pyrexia [Unknown]
  - Neurotoxicity [Not Recovered/Not Resolved]
  - Dyspepsia [Recovered/Resolved]
  - Aphthous ulcer [Recovered/Resolved]
  - Pain [Recovered/Resolved]
  - Nausea [Recovered/Resolved]
  - Rash pustular [Not Recovered/Not Resolved]
  - Conjunctivitis [Recovered/Resolved]
  - Asthenia [Recovered/Resolved]
  - Diarrhoea [Recovered/Resolved]
  - Rash [Recovered/Resolved]
  - Pollakiuria [Recovered/Resolved]
  - Constipation [Recovered/Resolved]
  - Stomatitis [Recovered/Resolved]

NARRATIVE: CASE EVENT DATE: 20161221
